FAERS Safety Report 20741543 (Version 5)
Quarter: 2022Q3

REPORT INFORMATION
  Report Type: Report from Study
  Country: US (occurrence: US)
  Receive Date: 20220422
  Receipt Date: 20220914
  Transmission Date: 20221026
  Serious: Yes (Death, Life-Threatening, Hospitalization)
  Sender: FDA-Public Use
  Company Number: US-PFIZER INC-202200591707

PATIENT
  Age: 72 Year
  Sex: Male
  Weight: 102.8 kg

DRUGS (24)
  1. SOLU-MEDROL [Suspect]
     Active Substance: METHYLPREDNISOLONE SODIUM SUCCINATE
     Indication: Aspartate aminotransferase increased
     Dosage: 40 MG, BID
     Route: 042
     Dates: start: 20220316, end: 202203
  2. DAVOCETICEPT [Suspect]
     Active Substance: DAVOCETICEPT
     Indication: Uveal melanoma
     Dosage: 0.3 MG/KG, WEEKLY
     Route: 042
     Dates: start: 20220103, end: 20220124
  3. PEMBROLIZUMAB [Suspect]
     Active Substance: PEMBROLIZUMAB
     Indication: Uveal melanoma
     Dosage: 400 MG, Q6W
     Route: 042
     Dates: start: 20220103, end: 20220214
  4. PREDNISONE [Suspect]
     Active Substance: PREDNISONE
     Indication: Aspartate aminotransferase increased
     Dosage: UNK UNK, WEEKLY
     Dates: start: 20220201
  5. PREDNISONE [Suspect]
     Active Substance: PREDNISONE
     Dosage: 50 MG, BID X5DAYS
     Route: 048
     Dates: start: 20220301, end: 202203
  6. PREDNISONE [Suspect]
     Active Substance: PREDNISONE
     Dosage: 40 MG, BID X 5DAYS
     Route: 048
     Dates: start: 202203, end: 202203
  7. PREDNISONE [Suspect]
     Active Substance: PREDNISONE
     Dosage: 30 MG, BID X 5DAYS
     Dates: start: 202203, end: 20220316
  8. PREDNISONE [Suspect]
     Active Substance: PREDNISONE
     Dosage: UNK
     Dates: start: 20220323
  9. AMLODIPINE BESYLATE [Concomitant]
     Active Substance: AMLODIPINE BESYLATE
     Dosage: UNK
  10. AREDS 2 VISUAL ADVANTAGE [Concomitant]
     Dosage: UNK
  11. ASPIRIN [Concomitant]
     Active Substance: ASPIRIN
     Dosage: UNK
  12. CELEBREX [Concomitant]
     Active Substance: CELECOXIB
     Dosage: UNK
  13. COLESEVELAM HYDROCHLORIDE [Concomitant]
     Active Substance: COLESEVELAM HYDROCHLORIDE
     Dosage: UNK
  14. FENOFIBRATE [Concomitant]
     Active Substance: FENOFIBRATE
     Dosage: UNK
  15. GABAPENTIN [Concomitant]
     Active Substance: GABAPENTIN
     Dosage: UNK
     Dates: start: 2020
  16. HYDROCHLOROTHIAZIDE\LISINOPRIL [Concomitant]
     Active Substance: HYDROCHLOROTHIAZIDE\LISINOPRIL
     Dosage: UNK
  17. METFORMIN HYDROCHLORIDE [Concomitant]
     Active Substance: METFORMIN HYDROCHLORIDE
     Dosage: UNK
  18. NIACIN [Concomitant]
     Active Substance: NIACIN
     Dosage: UNK
  19. VITAMIN B12 [Concomitant]
     Active Substance: CYANOCOBALAMIN
     Dosage: UNK
  20. VITAMINS NOS [Concomitant]
     Active Substance: VITAMINS
     Dosage: UNK
  21. VITAMIN C [Concomitant]
     Active Substance: ASCORBIC ACID
     Dosage: UNK
  22. VITAMIN D3 [Concomitant]
     Active Substance: CHOLECALCIFEROL
     Dosage: UNK
  23. ZINC [Concomitant]
     Active Substance: ZINC
     Dosage: UNK
  24. AV PHOS 250 NEUTRAL [Concomitant]
     Dosage: UNK
     Dates: start: 20220120

REACTIONS (4)
  - Small intestinal perforation [Fatal]
  - Small intestinal perforation [Recovered/Resolved]
  - Small intestinal perforation [Recovered/Resolved with Sequelae]
  - Asymptomatic COVID-19 [Unknown]

NARRATIVE: CASE EVENT DATE: 20220308
